FAERS Safety Report 4986468-0 (Version None)
Quarter: 2006Q2

REPORT INFORMATION
  Report Type: 
  Country: None (occurrence: None)
  Receive Date: 20060424
  Receipt Date: 20060412
  Transmission Date: 20061013
  Serious: Yes (Disabling)
  Sender: FDA-Public Use
  Company Number: 200000967GDS

PATIENT
  Age: 58 Year
  Sex: Male

DRUGS (2)
  1. CIPRO [Suspect]
     Indication: PNEUMONIA
     Dosage: 1000 MG, TOTAL DAILY, ORAL
     Route: 048
     Dates: start: 19981103, end: 19981110
  2. BIAXIN [Suspect]
     Indication: PNEUMONIA
     Dosage: 500 MG, TOTAL DAILY, ORAL
     Route: 048
     Dates: start: 19981028, end: 19981103

REACTIONS (25)
  - ANTINUCLEAR ANTIBODY POSITIVE [None]
  - ARTHROPATHY [None]
  - CONDITION AGGRAVATED [None]
  - CONNECTIVE TISSUE DISORDER [None]
  - CUSHINGOID [None]
  - DRUG HYPERSENSITIVITY [None]
  - DYSPNOEA EXERTIONAL [None]
  - FOCAL GLOMERULOSCLEROSIS [None]
  - GLOMERULONEPHRITIS PROLIFERATIVE [None]
  - HYDRONEPHROSIS [None]
  - INDURATION [None]
  - JOINT SWELLING [None]
  - MUSCLE ATROPHY [None]
  - MUSCULOSKELETAL STIFFNESS [None]
  - NEPHROTIC SYNDROME [None]
  - OEDEMA PERIPHERAL [None]
  - OSTEOARTHRITIS [None]
  - POLYARTHRITIS [None]
  - PYREXIA [None]
  - RASH MACULO-PAPULAR [None]
  - RAYNAUD'S PHENOMENON [None]
  - RED BLOOD CELL SEDIMENTATION RATE INCREASED [None]
  - SYSTEMIC LUPUS ERYTHEMATOSUS [None]
  - SYSTEMIC SCLEROSIS [None]
  - WEIGHT DECREASED [None]
